FAERS Safety Report 15418171 (Version 1)
Quarter: 2018Q3

REPORT INFORMATION
  Report Type: Spontaneous
  Country: US (occurrence: US)
  Receive Date: 20180924
  Receipt Date: 20180924
  Transmission Date: 20181010
  Serious: Yes (Hospitalization)
  Sender: FDA-Public Use
  Company Number: US-OTSUKA-2018_022539

PATIENT
  Sex: Female

DRUGS (2)
  1. ABILIFY [Suspect]
     Active Substance: ARIPIPRAZOLE
     Indication: SCHIZOPHRENIA
     Dosage: UNK
     Route: 065
     Dates: start: 200609, end: 201808
  2. ABILIFY [Suspect]
     Active Substance: ARIPIPRAZOLE
     Indication: MAJOR DEPRESSION

REACTIONS (7)
  - Sexual dysfunction [Recovered/Resolved]
  - Mental disorder [Unknown]
  - Compulsive shopping [Recovered/Resolved]
  - Sexually transmitted disease [Unknown]
  - Economic problem [Unknown]
  - Gambling disorder [Unknown]
  - Obsessive-compulsive disorder [Unknown]
